FAERS Safety Report 4414054-X (Version None)
Quarter: 2004Q3

REPORT INFORMATION
  Report Type: 
  Country: None (occurrence: None)
  Receive Date: 20040803
  Receipt Date: 20040624
  Transmission Date: 20050211
  Serious: Yes (Other)
  Sender: FDA-Public Use
  Company Number: SE-GLAXOSMITHKLINE-B0341295A

PATIENT
  Age: 56 Year
  Sex: Male

DRUGS (1)
  1. ZYBAN [Suspect]

REACTIONS (2)
  - CONVULSION [None]
  - SLEEP DISORDER [None]
